FAERS Safety Report 10364734 (Version 3)
Quarter: 2014Q3

REPORT INFORMATION
  Report Type: Spontaneous
  Country: US (occurrence: None)
  Receive Date: 20140814
  Receipt Date: 20140828
  Transmission Date: 20150326
  Serious: Yes (Hospitalization, Other)
  Sender: FDA-Public Use
  Company Number: UNT-2014-004585

PATIENT
  Age: 60 Year
  Sex: Female
  Weight: 96.1 kg

DRUGS (3)
  1. REVATIO (SILDENAFIL CITRATE) [Concomitant]
  2. REMODULIN [Suspect]
     Active Substance: TREPROSTINIL
     Indication: PULMONARY ARTERIAL HYPERTENSION
     Route: 041
     Dates: start: 20140703
  3. WARFARIN [Concomitant]
     Active Substance: WARFARIN

REACTIONS (9)
  - Fluid retention [None]
  - Catheter site haemorrhage [None]
  - Fluid overload [None]
  - Nervousness [None]
  - Syncope [None]
  - Electrocardiogram ST-T segment abnormal [None]
  - Palpitations [None]
  - Loss of consciousness [None]
  - Fatigue [None]

NARRATIVE: CASE EVENT DATE: 20140804
